FAERS Safety Report 17651815 (Version 1)
Quarter: 2020Q2

REPORT INFORMATION
  Report Type: Spontaneous
  Country: US (occurrence: US)
  Receive Date: 20200409
  Receipt Date: 20200409
  Transmission Date: 20200713
  Serious: Yes (Other)
  Sender: FDA-Public Use
  Company Number: US-ASTRAZENECA-2020SE44634

PATIENT
  Sex: Female
  Weight: 65.8 kg

DRUGS (1)
  1. PULMICORT FLEXHALER [Suspect]
     Active Substance: BUDESONIDE
     Route: 055
     Dates: start: 20110621

REACTIONS (4)
  - Pulmonary fibrosis [Unknown]
  - Device issue [Unknown]
  - Respiratory tract irritation [Unknown]
  - Incorrect dose administered by device [Unknown]
